FAERS Safety Report 4512141-9 (Version None)
Quarter: 2004Q4

REPORT INFORMATION
  Report Type: 
  Country: None (occurrence: None)
  Receive Date: 20041129
  Receipt Date: 20040219
  Transmission Date: 20050328
  Serious: No
  Sender: FDA-Public Use
  Company Number: US-GLAXOSMITHKLINE-A0498868A

PATIENT
  Age: 58 Year
  Sex: Female

DRUGS (7)
  1. LANOXIN [Suspect]
     Indication: ILL-DEFINED DISORDER
     Dosage: .25MG PER DAY
     Route: 048
  2. SPIRONOLACTONE [Concomitant]
  3. FUROSEMIDE [Concomitant]
  4. LORAZEPAM [Concomitant]
  5. HYDROCODONE + ACETAMINOPHEN [Concomitant]
  6. IMODIUM [Concomitant]
  7. METFORMIN HCL [Concomitant]

REACTIONS (1)
  - DIARRHOEA [None]
